FAERS Safety Report 22241371 (Version 1)
Quarter: 2023Q2

REPORT INFORMATION
  Report Type: Report from Study
  Country: US (occurrence: US)
  Receive Date: 20230421
  Receipt Date: 20230421
  Transmission Date: 20230722
  Serious: No
  Sender: FDA-Public Use
  Company Number: US-002147023-NVSC2023US085505

PATIENT
  Age: 39 Year
  Sex: Female

DRUGS (12)
  1. TRIAMCINOLONE [Suspect]
     Active Substance: TRIAMCINOLONE
     Indication: Dermatitis
     Dosage: UNK
     Route: 065
  2. TRIAMCINOLONE [Suspect]
     Active Substance: TRIAMCINOLONE
     Indication: Hidradenitis
  3. CLINDAMYCIN [Suspect]
     Active Substance: CLINDAMYCIN
     Indication: Dermatitis
     Dosage: UNK
     Route: 065
  4. CLINDAMYCIN [Suspect]
     Active Substance: CLINDAMYCIN
     Indication: Hidradenitis
  5. MINOCYCLINE [Suspect]
     Active Substance: MINOCYCLINE HYDROCHLORIDE
     Indication: Dermatitis
     Dosage: 100 MG
     Route: 048
     Dates: end: 20211108
  6. MINOCYCLINE [Suspect]
     Active Substance: MINOCYCLINE HYDROCHLORIDE
     Indication: Hidradenitis
  7. CLOBETASOL [Suspect]
     Active Substance: CLOBETASOL
     Indication: Dermatitis
     Dosage: UNK
     Route: 065
  8. CLOBETASOL [Suspect]
     Active Substance: CLOBETASOL
     Indication: Dermatitis
  9. MOMETASONE [Suspect]
     Active Substance: MOMETASONE
     Indication: Dermatitis
     Dosage: 0.05 % (PERCENT)
     Route: 065
  10. MOMETASONE [Suspect]
     Active Substance: MOMETASONE
     Indication: Hidradenitis
  11. VITAMIN D2 [Suspect]
     Active Substance: ERGOCALCIFEROL
     Indication: Dermatitis
     Dosage: UNK
     Route: 065
  12. VITAMIN D2 [Suspect]
     Active Substance: ERGOCALCIFEROL
     Indication: Hidradenitis

REACTIONS (12)
  - Eczema [Unknown]
  - Psoriasis [Unknown]
  - Skin exfoliation [Unknown]
  - Rash pruritic [Unknown]
  - Rash erythematous [Unknown]
  - Oropharyngeal discomfort [Unknown]
  - Photosensitivity reaction [Unknown]
  - Hidradenitis [Unknown]
  - Rash [Recovering/Resolving]
  - Maternal exposure during pregnancy [Unknown]
  - Drug ineffective [Unknown]
  - Product use in unapproved indication [Unknown]

NARRATIVE: CASE EVENT DATE: 20220503
